FAERS Safety Report 6541010-8 (Version None)
Quarter: 2010Q1

REPORT INFORMATION
  Report Type: 
  Country: None (occurrence: None)
  Receive Date: 20100118
  Receipt Date: 20100111
  Transmission Date: 20100710
  Serious: Yes (Hospitalization, Other)
  Sender: FDA-Public Use
  Company Number: US-BAYER-201010350BCC

PATIENT
  Age: 77 Year
  Sex: Male

DRUGS (12)
  1. ASPIRIN [Suspect]
     Indication: CORONARY ARTERY DISEASE
     Dosage: TOTAL DAILY DOSE: 81 MG  UNIT DOSE: 81 MG
     Route: 048
     Dates: start: 19950101
  2. DASATINIB OR PLACEBO [Suspect]
     Indication: PROSTATE CANCER
     Dosage: TOTAL DAILY DOSE: 100 MG  UNIT DOSE: 100 MG
     Route: 048
     Dates: start: 20090623
  3. DOCETAXEL [Suspect]
     Indication: PROSTATE CANCER
     Route: 042
     Dates: start: 20090915, end: 20090915
  4. PREDNISONE [Suspect]
     Indication: PROSTATE CANCER
     Route: 048
     Dates: start: 20090623
  5. DEXAMETHASONE [Suspect]
     Indication: PREMEDICATION
     Route: 048
     Dates: start: 20090623
  6. COUMADIN [Suspect]
     Indication: ATRIAL FIBRILLATION
     Dosage: TOTAL DAILY DOSE: 1 DF  UNIT DOSE: 1 DF
     Route: 048
     Dates: start: 20081101, end: 20090901
  7. AVAPRO [Concomitant]
     Dates: start: 20081101
  8. BETIMOL [Concomitant]
     Dates: start: 19920101
  9. ZOMETA [Concomitant]
     Dates: start: 20090401
  10. TUMS [Concomitant]
     Dates: start: 20050101
  11. DARVON [Concomitant]
     Dates: start: 20090401
  12. TYLENOL (CAPLET) [Concomitant]
     Dates: start: 20050101

REACTIONS (5)
  - ATRIAL FIBRILLATION [None]
  - EPISTAXIS [None]
  - HAEMATURIA [None]
  - RECTAL HAEMORRHAGE [None]
  - WHITE BLOOD CELL COUNT DECREASED [None]
